FAERS Safety Report 7736566-3 (Version None)
Quarter: 2011Q3

REPORT INFORMATION
  Report Type: 
  Country: None (occurrence: None)
  Receive Date: 20110908
  Receipt Date: 20110830
  Transmission Date: 20111222
  Serious: Yes (Hospitalization)
  Sender: FDA-Public Use
  Company Number: IN-SANOFI-AVENTIS-2011SA055859

PATIENT
  Age: 23 Year
  Sex: Female
  Weight: 37.6 kg

DRUGS (8)
  1. BLINDED THERAPY [Suspect]
     Indication: PULMONARY TUBERCULOSIS
     Route: 065
     Dates: start: 20110828
  2. ACETAMINOPHEN [Concomitant]
     Route: 065
  3. PYRAZINAMIDE [Suspect]
     Indication: PULMONARY TUBERCULOSIS
     Route: 065
     Dates: start: 20110828
  4. BLINDED THERAPY [Suspect]
     Route: 065
     Dates: start: 20110828
  5. CODEINE [Concomitant]
     Dosage: DOSE:3 UNIT(S)
     Route: 065
  6. RIFAMPICIN [Suspect]
     Indication: PULMONARY TUBERCULOSIS
     Route: 065
     Dates: start: 20110828
  7. BLINDED THERAPY [Suspect]
     Route: 065
     Dates: start: 20110828
  8. ALPRAZOLAM [Concomitant]
     Route: 065

REACTIONS (3)
  - HAEMOPTYSIS [None]
  - HAEMATOCHEZIA [None]
  - HAEMORRHAGE [None]
